FAERS Safety Report 21935346 (Version 5)
Quarter: 2023Q1

REPORT INFORMATION
  Report Type: Spontaneous
  Country: US (occurrence: US)
  Receive Date: 20230201
  Receipt Date: 20230331
  Transmission Date: 20230418
  Serious: No
  Sender: FDA-Public Use
  Company Number: US-PFIZER INC-202300038512

PATIENT
  Age: 11 Year
  Sex: Female
  Weight: 36.74 kg

DRUGS (4)
  1. GENOTROPIN [Suspect]
     Active Substance: SOMATROPIN
     Indication: Short stature
     Dosage: UNK
  2. GENOTROPIN [Suspect]
     Active Substance: SOMATROPIN
     Indication: Growth disorder
     Dosage: 1.8 MG, EVERY NIGHT EXCEPT FOR MONDAYS
  3. GUANFACINE [Concomitant]
     Active Substance: GUANFACINE
     Indication: Attention deficit hyperactivity disorder
     Dosage: 0.5 DF, 2X/DAY (1/2 TABLET TAKEN IN MORNING AND NIGHT) (THINKS STARTED AT LEAST 4 YEARS AGO OR SO)
  4. DAYTRANA [Concomitant]
     Active Substance: METHYLPHENIDATE
     Indication: Attention deficit hyperactivity disorder
     Dosage: UNK (THINKS STARTED AT LEAST 4 OR 5 YEARS AGO OR SO)

REACTIONS (4)
  - Drug dose omission by device [Unknown]
  - Device issue [Unknown]
  - Device malfunction [Unknown]
  - Device difficult to use [Unknown]
